FAERS Safety Report 18088686 (Version 2)
Quarter: 2020Q3

REPORT INFORMATION
  Report Type: Spontaneous
  Country: US (occurrence: US)
  Receive Date: 20200729
  Receipt Date: 20200731
  Transmission Date: 20201103
  Serious: No
  Sender: FDA-Public Use
  Company Number: US-PFIZER INC-2020288203

PATIENT
  Sex: Female

DRUGS (63)
  1. PARAPLATIN [Concomitant]
     Active Substance: CARBOPLATIN
     Dosage: 750 MG, 1X/DAY
     Dates: start: 20200203, end: 20200203
  2. PARAPLATIN [Concomitant]
     Active Substance: CARBOPLATIN
     Dosage: 600 MG
     Route: 042
     Dates: start: 20200330
  3. ATIVAN [Concomitant]
     Active Substance: LORAZEPAM
     Dosage: 1 MG, 1X/DAY
     Dates: start: 20200203, end: 20200203
  4. CINVANTI [Concomitant]
     Active Substance: APREPITANT
     Dosage: 130 MG/18ML
     Dates: start: 20200113, end: 20200114
  5. CINVANTI [Concomitant]
     Active Substance: APREPITANT
     Dosage: 130 MG, 1X/DAY
     Route: 042
     Dates: start: 20200203, end: 20200203
  6. NEULASTA [Concomitant]
     Active Substance: PEGFILGRASTIM
     Dosage: 6 MG, 1X/DAY
     Route: 058
     Dates: start: 20200113, end: 20200113
  7. SOLU?CORTEF [Concomitant]
     Active Substance: HYDROCORTISONE SODIUM SUCCINATE
     Dosage: 100 MG, AS NEEDED
     Route: 042
     Dates: start: 20200203, end: 20200203
  8. TAXOTERE [Suspect]
     Active Substance: DOCETAXEL
     Dosage: 120 MG, 1X/DAY
     Route: 042
     Dates: start: 20200203, end: 20200203
  9. PARAPLATIN [Concomitant]
     Active Substance: CARBOPLATIN
     Dosage: 900 MG, 1X/DAY
     Route: 042
     Dates: start: 20200113, end: 20200113
  10. PERJETA [Concomitant]
     Active Substance: PERTUZUMAB
     Dosage: 840 MG, 1X/DAY
     Route: 042
     Dates: start: 20200113, end: 20200113
  11. ALLEGRA [Concomitant]
     Active Substance: FEXOFENADINE HYDROCHLORIDE
     Dosage: 180 MG (TOTAL), DAILY
     Route: 048
     Dates: start: 20190130
  12. SODIUM CHLORIDE. [Concomitant]
     Active Substance: SODIUM CHLORIDE
     Dosage: 10 ML, AS NEEDED
     Dates: start: 20200326, end: 20200327
  13. ATIVAN [Concomitant]
     Active Substance: LORAZEPAM
     Dosage: 1 MG, 1X/DAY
     Route: 042
     Dates: start: 20200113, end: 20200113
  14. HEPARIN LOCK FLUSH [Concomitant]
     Active Substance: HEPARIN SODIUM
     Dosage: 50 IU
     Dates: start: 20200330
  15. TYLENOL [Concomitant]
     Active Substance: ACETAMINOPHEN
     Dosage: 325 MG
     Dates: start: 20200302, end: 20200302
  16. EMLA [Concomitant]
     Active Substance: LIDOCAINE\PRILOCAINE
     Dosage: 1 DF, 1X/DAY
     Route: 061
     Dates: start: 20200113
  17. CETIRIZINE HCL [Concomitant]
     Active Substance: CETIRIZINE HYDROCHLORIDE
     Dosage: 1 DF, DAILY
     Route: 048
     Dates: start: 20200303, end: 20200504
  18. VITAMIN C [Concomitant]
     Active Substance: ASCORBIC ACID
     Dosage: 500 MG, DAILY
     Route: 048
  19. VITAMIN D [Concomitant]
     Active Substance: VITAMIN D NOS
     Dosage: UNK, DAILY
     Route: 048
  20. LUMASON [Concomitant]
     Active Substance: SULFUR HEXAFLUORIDE
     Dosage: UNK, AS NEEDED
     Dates: start: 20200113, end: 20200113
  21. ATIVAN [Concomitant]
     Active Substance: LORAZEPAM
     Dosage: 2 MG/ML
     Dates: start: 20200113, end: 20200114
  22. DECADRON [Concomitant]
     Active Substance: DEXAMETHASONE
     Dosage: 20 MG, 1X/DAY
     Route: 042
     Dates: start: 20200113, end: 20200113
  23. CLARITIN [Concomitant]
     Active Substance: LORATADINE
     Dosage: 10 MG, 1X/DAY
     Route: 048
     Dates: start: 20200113, end: 20200113
  24. PEPCID [Concomitant]
     Active Substance: FAMOTIDINE
     Dosage: 20 MG/2ML, AS NEEDED
     Route: 042
     Dates: start: 20200113, end: 20200113
  25. PEPCID [Concomitant]
     Active Substance: FAMOTIDINE
     Dosage: 20 MG, AS NEEDED
     Route: 042
     Dates: start: 20200203, end: 20200203
  26. HEPARIN LOCK FLUSH [Concomitant]
     Active Substance: HEPARIN SODIUM
     Dosage: 50 DF, AS NEEDED
     Dates: start: 20200113, end: 20200114
  27. TYLENOL [Concomitant]
     Active Substance: ACETAMINOPHEN
     Dosage: 650 MG, 1X/DAY
     Route: 048
     Dates: start: 20200113, end: 20200113
  28. HERCEPTIN [Concomitant]
     Active Substance: TRASTUZUMAB
     Dosage: 720 MG, 1X/DAY
     Route: 042
     Dates: start: 20200113, end: 20200113
  29. HERCEPTIN [Concomitant]
     Active Substance: TRASTUZUMAB
     Dosage: 540 MG
     Route: 042
     Dates: start: 20200330
  30. SODIUM CHLORIDE. [Concomitant]
     Active Substance: SODIUM CHLORIDE
     Dosage: 30 ML/HR, AS NEEDED
     Route: 042
     Dates: start: 20200113, end: 20200114
  31. SODIUM CHLORIDE. [Concomitant]
     Active Substance: SODIUM CHLORIDE
     Dosage: 30 ML/HR, AS NEEDED
     Route: 042
     Dates: start: 20200203, end: 20200203
  32. CINVANTI [Concomitant]
     Active Substance: APREPITANT
     Dosage: 130 MG, 1X/DAY
     Route: 042
     Dates: start: 20200113, end: 20200113
  33. CINVANTI [Concomitant]
     Active Substance: APREPITANT
     Dosage: 130 MG
     Route: 042
     Dates: start: 20200330
  34. LUPRON DEPOT [Concomitant]
     Active Substance: LEUPROLIDE ACETATE
     Dosage: 3.75 MG
     Route: 030
     Dates: start: 20200309, end: 20200309
  35. DECADRON [Concomitant]
     Active Substance: DEXAMETHASONE
     Dosage: 8 MG, 1X/DAY
     Dates: start: 20200113, end: 20200323
  36. POLYTRIM [Concomitant]
     Active Substance: POLYMYXIN B SULFATE\TRIMETHOPRIM SULFATE
     Dosage: 2 DROP, 4X/DAY (1 DROP INTO BOTH EYES)
     Dates: start: 20200228
  37. DOCETAXEL. [Suspect]
     Active Substance: DOCETAXEL
     Dosage: UNK
  38. TAXOTERE [Suspect]
     Active Substance: DOCETAXEL
     Dosage: 90 MG
     Route: 042
     Dates: start: 20200330
  39. SYMBICORT [Concomitant]
     Active Substance: BUDESONIDE\FORMOTEROL FUMARATE DIHYDRATE
     Dosage: 2 DF, 2X/DAY
     Route: 045
     Dates: start: 20190130
  40. SODIUM CHLORIDE. [Concomitant]
     Active Substance: SODIUM CHLORIDE
     Dosage: 10 ML
     Dates: start: 20200330
  41. ROXICODONE [Concomitant]
     Active Substance: OXYCODONE HYDROCHLORIDE
     Dosage: 5 MG, AS NEEDED (EVERY 6 HOURS)
     Route: 048
     Dates: start: 20200113, end: 20200504
  42. ALOXI [Concomitant]
     Active Substance: PALONOSETRON HYDROCHLORIDE
     Dosage: 0.25 MG, 1X/DAY
     Dates: start: 20200113, end: 20200113
  43. ALOXI [Concomitant]
     Active Substance: PALONOSETRON HYDROCHLORIDE
     Dosage: 0.25 MG, 1X/DAY
     Route: 042
     Dates: start: 20200203, end: 20200203
  44. ALOXI [Concomitant]
     Active Substance: PALONOSETRON HYDROCHLORIDE
     Dosage: 0.25 MG
     Route: 042
     Dates: start: 20200330
  45. ATIVAN [Concomitant]
     Active Substance: LORAZEPAM
     Dosage: 0.5 MG
     Route: 042
     Dates: start: 20200330
  46. DECADRON [Concomitant]
     Active Substance: DEXAMETHASONE
     Dosage: 20 MG
     Route: 042
     Dates: start: 20200330
  47. CLARITIN [Concomitant]
     Active Substance: LORATADINE
     Dosage: 10 MG
     Route: 048
     Dates: start: 20200330
  48. DECADRON [Concomitant]
     Active Substance: DEXAMETHASONE
     Dosage: 10 MG/ML
     Dates: start: 20200113, end: 20200114
  49. NEULASTA [Concomitant]
     Active Substance: PEGFILGRASTIM
     Dosage: 6 MG,1X/DAY
     Route: 058
     Dates: start: 20200203, end: 20200203
  50. LUPRON DEPOT [Concomitant]
     Active Substance: LEUPROLIDE ACETATE
     Dosage: 3.75 MG, 1X/DAY
     Route: 030
     Dates: start: 20200113, end: 20200113
  51. TYLENOL [Concomitant]
     Active Substance: ACETAMINOPHEN
     Dosage: 325 MG
     Dates: start: 20200113, end: 20200114
  52. TAXOTERE [Suspect]
     Active Substance: DOCETAXEL
     Dosage: 150 MG, 1X/DAY
     Route: 042
     Dates: start: 20200113, end: 20200113
  53. ZYRTEC [Concomitant]
     Active Substance: CETIRIZINE HYDROCHLORIDE
     Dosage: 10 MG, 1X/DAY
     Route: 048
     Dates: start: 20191104
  54. FLONASE [Concomitant]
     Active Substance: FLUTICASONE PROPIONATE
     Dosage: 2 DF, DAILY
     Route: 045
     Dates: start: 20190130
  55. SODIUM CHLORIDE. [Concomitant]
     Active Substance: SODIUM CHLORIDE
     Dosage: UNK, 1X/DAY (0.9 PERCENTAGE FLUSH 20 ML)
     Route: 042
     Dates: start: 20200113, end: 20200113
  56. ALOXI [Concomitant]
     Active Substance: PALONOSETRON HYDROCHLORIDE
     Dosage: 0.25 MG/5ML
     Dates: start: 20200113, end: 20200114
  57. DECADRON [Concomitant]
     Active Substance: DEXAMETHASONE
     Dosage: 20 MG, 1X/DAY
     Route: 042
     Dates: start: 20200203, end: 20200203
  58. CLARITIN [Concomitant]
     Active Substance: LORATADINE
     Dosage: 10 MG
     Route: 048
     Dates: start: 20200203
  59. NEULASTA [Concomitant]
     Active Substance: PEGFILGRASTIM
     Dosage: 6 MG/0.6ML
     Dates: start: 20200113, end: 20200114
  60. BENADRYL [Concomitant]
     Active Substance: DIPHENHYDRAMINE HYDROCHLORIDE
     Dosage: 50 MG, AS NEEDED
     Route: 042
     Dates: start: 20200203, end: 20200203
  61. ROXICODONE [Concomitant]
     Active Substance: OXYCODONE HYDROCHLORIDE
     Dosage: 5 MG, 1X/DAY
     Route: 048
     Dates: start: 20200113, end: 20200113
  62. CLARITIN [Concomitant]
     Active Substance: LORATADINE
     Dosage: 10 MG
     Dates: start: 20200113, end: 20200114
  63. PEPCID [Concomitant]
     Active Substance: FAMOTIDINE
     Dosage: 20 MG/2ML
     Dates: start: 20200113, end: 20200114

REACTIONS (2)
  - Dacryostenosis acquired [Unknown]
  - Lacrimation increased [Unknown]
